FAERS Safety Report 7487718-1 (Version None)
Quarter: 2011Q2

REPORT INFORMATION
  Report Type: 
  Country: None (occurrence: None)
  Receive Date: 20110518
  Receipt Date: 20110506
  Transmission Date: 20111010
  Serious: Yes (Other)
  Sender: FDA-Public Use
  Company Number: PHHY2011US39301

PATIENT
  Sex: Male

DRUGS (6)
  1. TOPROL-XL [Concomitant]
     Dosage: 100 MG, QD
  2. AMPILEAN [Concomitant]
     Dosage: 10 MG, QD
  3. METFORMIN HCL [Concomitant]
     Dosage: UNK
  4. VALTURNA [Suspect]
     Dosage: 300 MG, QD
  5. ZOCOR [Concomitant]
  6. WATER PILLS [Concomitant]

REACTIONS (2)
  - URINE OUTPUT INCREASED [None]
  - WRONG TECHNIQUE IN DRUG USAGE PROCESS [None]
